FAERS Safety Report 5771781-X (Version None)
Quarter: 2008Q2

REPORT INFORMATION
  Report Type: 
  Country: None (occurrence: None)
  Receive Date: 20080613
  Receipt Date: 20080602
  Transmission Date: 20081010
  Serious: Yes (Hospitalization, Other)
  Sender: FDA-Public Use
  Company Number: DE-BRISTOL-MYERS SQUIBB COMPANY-14173256

PATIENT
  Age: 69 Year
  Sex: Female
  Weight: 49 kg

DRUGS (4)
  1. CYCLOPHOSPHAMIDE [Suspect]
     Indication: BREAST CANCER
     Route: 065
     Dates: start: 20071101, end: 20080301
  2. FLUOROURACIL [Suspect]
     Indication: BREAST CANCER
     Route: 065
     Dates: start: 20071101, end: 20080301
  3. SIMVASTATIN [Concomitant]
  4. CLEXANE [Concomitant]
     Route: 058

REACTIONS (5)
  - CARDIAC DISORDER [None]
  - CARDIAC ENZYMES INCREASED [None]
  - ELECTROCARDIOGRAM ABNORMAL [None]
  - TROPONIN I INCREASED [None]
  - WHITE BLOOD CELL COUNT DECREASED [None]
